FAERS Safety Report 14610185 (Version 5)
Quarter: 2018Q2

REPORT INFORMATION
  Report Type: Spontaneous
  Country: US (occurrence: US)
  Receive Date: 20180307
  Receipt Date: 20180504
  Transmission Date: 20180711
  Serious: Yes (Hospitalization, Other)
  Sender: FDA-Public Use
  Company Number: US-PFIZER INC-2018089600

PATIENT
  Age: 18 Year
  Sex: Male

DRUGS (3)
  1. METFORMIN [Suspect]
     Active Substance: METFORMIN HYDROCHLORIDE
     Dosage: UNK, MULTIPLE PILLS
     Route: 048
  2. LISINOPRIL/HYDROCHLOORTHIAZIDE [Suspect]
     Active Substance: HYDROCHLOROTHIAZIDE\LISINOPRIL
     Dosage: UNK, MULTIPLE PILLS
     Route: 048
  3. AMLODIPINE BESILATE [Suspect]
     Active Substance: AMLODIPINE BESYLATE
     Dosage: UNK, MULTIPLE PILLS
     Route: 048

REACTIONS (8)
  - Renal failure [Recovered/Resolved]
  - Accidental exposure to product [Recovered/Resolved]
  - Toxicity to various agents [Recovered/Resolved]
  - Sinus tachycardia [Recovered/Resolved]
  - Lactic acidosis [Recovered/Resolved]
  - Accidental overdose [Recovered/Resolved]
  - Vomiting [Recovered/Resolved]
  - Hypotension [Recovered/Resolved]
